FAERS Safety Report 12552936 (Version 1)
Quarter: 2016Q3

REPORT INFORMATION
  Report Type: Spontaneous
  Country: US (occurrence: US)
  Receive Date: 20160713
  Receipt Date: 20160713
  Transmission Date: 20161109
  Serious: No
  Sender: FDA-Public Use
  Company Number: US-HORIZON-PEN-0311-2016

PATIENT
  Sex: Male

DRUGS (2)
  1. HYDROCORTISONE. [Concomitant]
     Active Substance: HYDROCORTISONE
  2. PENNSAID [Suspect]
     Active Substance: DICLOFENAC SODIUM
     Indication: INFLAMMATION
     Dosage: BID

REACTIONS (6)
  - Administration site discharge [Unknown]
  - Hyperaesthesia [Unknown]
  - Application site pruritus [Recovering/Resolving]
  - Pruritus [Unknown]
  - Off label use [Unknown]
  - Application site exfoliation [Recovering/Resolving]
